FAERS Safety Report 8422694-6 (Version None)
Quarter: 2012Q2

REPORT INFORMATION
  Report Type: 
  Country: None (occurrence: None)
  Receive Date: 20120608
  Receipt Date: 20120530
  Transmission Date: 20120825
  Serious: Yes (Other)
  Sender: FDA-Public Use
  Company Number: US-JNJFOC-20120100913

PATIENT
  Sex: Female

DRUGS (13)
  1. VITAMIN B6 [Concomitant]
  2. GLIPIZIDE W/METFORMIN HYDROCHLORIDE [Concomitant]
  3. GLUCOTROL [Concomitant]
  4. ATENOLOL [Concomitant]
     Route: 048
  5. REMICADE [Suspect]
     Indication: RHEUMATOID ARTHRITIS
     Route: 042
  6. CELEXA [Concomitant]
     Route: 048
  7. LEVOTHROID [Concomitant]
     Route: 048
  8. DEXILANT [Concomitant]
     Route: 048
     Dates: start: 20110629
  9. KETOCONAZOLE [Concomitant]
  10. HUMIRA [Concomitant]
  11. AMBIEN [Concomitant]
     Route: 048
  12. VITAMIN D [Concomitant]
     Dosage: 2000 UNITS
     Route: 048
  13. FISH OIL [Concomitant]
     Route: 048

REACTIONS (1)
  - BREAST CANCER [None]
